FAERS Safety Report 9256418 (Version 1)
Quarter: 2013Q2

REPORT INFORMATION
  Report Type: Spontaneous
  Country: FI (occurrence: FI)
  Receive Date: 20130426
  Receipt Date: 20130426
  Transmission Date: 20140414
  Serious: Yes (Hospitalization, Other)
  Sender: FDA-Public Use
  Company Number: FI-ROCHE-1192820

PATIENT
  Sex: Male

DRUGS (23)
  1. MABTHERA [Suspect]
     Indication: RHEUMATOID ARTHRITIS
     Route: 042
     Dates: start: 20130121, end: 20130121
  2. BISOPROLOL [Concomitant]
     Route: 065
  3. TAMSULOSIN [Concomitant]
     Route: 065
  4. OMEPRAZOL [Concomitant]
     Route: 065
  5. CIPRALEX [Concomitant]
     Route: 065
  6. APURIN [Concomitant]
     Route: 065
  7. PREDNISOLON [Concomitant]
     Route: 065
  8. NORSPAN [Concomitant]
     Route: 065
  9. PARA-TABS [Concomitant]
     Route: 065
  10. MAREVAN [Concomitant]
     Route: 065
  11. TRIOBE [Concomitant]
     Route: 065
  12. KALCIPOS-D [Concomitant]
     Route: 065
  13. XALATAN [Concomitant]
     Route: 047
  14. AVAMYS [Concomitant]
     Route: 045
  15. MELATONIN [Concomitant]
     Route: 065
  16. LACTULOSA [Concomitant]
     Route: 065
  17. OBSIDAN (FERROUS GLYCINE SULFATE) [Concomitant]
     Route: 065
  18. DINIT [Concomitant]
  19. LAXOBERON [Concomitant]
  20. TENOX [Concomitant]
  21. CETIRIZIN [Concomitant]
  22. ORUDIS [Concomitant]
  23. NAPROXEN [Concomitant]

REACTIONS (5)
  - Cardiac failure acute [Recovering/Resolving]
  - Atrial fibrillation [Unknown]
  - Cardiac arrest [Recovered/Resolved]
  - Bradycardia [Unknown]
  - Tachycardia [Unknown]
